FAERS Safety Report 19485294 (Version 2)
Quarter: 2025Q1

REPORT INFORMATION
  Report Type: Spontaneous
  Country: JP (occurrence: JP)
  Receive Date: 20210702
  Receipt Date: 20250328
  Transmission Date: 20250409
  Serious: Yes (Other)
  Sender: AUROBINDO
  Company Number: JP-AUROBINDO-AUR-APL-2021-028191

PATIENT
  Age: 72 Year
  Sex: Female

DRUGS (2)
  1. PRALATREXATE [Suspect]
     Active Substance: PRALATREXATE
     Indication: Angioimmunoblastic T-cell lymphoma
     Route: 042
  2. FORODESINE HYDROCHLORIDE [Suspect]
     Active Substance: FORODESINE HYDROCHLORIDE
     Indication: Angioimmunoblastic T-cell lymphoma
     Route: 048

REACTIONS (2)
  - Malignant neoplasm progression [Unknown]
  - Drug ineffective [Unknown]
